FAERS Safety Report 7792375-0 (Version None)
Quarter: 2011Q4

REPORT INFORMATION
  Report Type: 
  Country: None (occurrence: None)
  Receive Date: 20111003
  Receipt Date: 20110927
  Transmission Date: 20120403
  Serious: Yes (Death, Other)
  Sender: FDA-Public Use
  Company Number: US-ASTRAZENECA-2009UW07222

PATIENT
  Age: 76 Year
  Sex: Male
  Weight: 81.6 kg

DRUGS (3)
  1. NEXIUM [Suspect]
     Route: 048
  2. CRESTOR [Suspect]
     Indication: BLOOD CHOLESTEROL ABNORMAL
     Route: 048
     Dates: start: 20080601, end: 20100201
  3. PLAVIX [Concomitant]

REACTIONS (3)
  - CONSTIPATION [None]
  - RENAL FAILURE [None]
  - GASTRIC CANCER [None]
